FAERS Safety Report 14207334 (Version 1)
Quarter: 2017Q4

REPORT INFORMATION
  Report Type: Spontaneous
  Country: US (occurrence: None)
  Receive Date: 20171120
  Receipt Date: 20171120
  Transmission Date: 20180321
  Serious: Yes (Hospitalization)
  Sender: FDA-Public Use
  Company Number: None

PATIENT
  Age: 70 Year
  Sex: Male

DRUGS (1)
  1. HEPARIN [Suspect]
     Active Substance: HEPARIN SODIUM
     Indication: VASCULAR OPERATION
     Dates: start: 20170817, end: 20170820

REACTIONS (5)
  - General physical health deterioration [None]
  - Heparin-induced thrombocytopenia [None]
  - Pulmonary embolism [None]
  - Thrombosis [None]
  - Haemoptysis [None]

NARRATIVE: CASE EVENT DATE: 20170820
